FAERS Safety Report 4422512-7 (Version None)
Quarter: 2004Q3

REPORT INFORMATION
  Report Type: 
  Country: None (occurrence: None)
  Receive Date: 20040806
  Receipt Date: 20040730
  Transmission Date: 20050211
  Serious: Yes (Hospitalization)
  Sender: FDA-Public Use
  Company Number: 2004-07-1284

PATIENT
  Age: 41 Year
  Sex: Female

DRUGS (4)
  1. PEG-INTRON [Suspect]
     Indication: CHRONIC HEPATITIS
     Dosage: SEE IMAGE
     Dates: start: 20040615, end: 20040705
  2. PEG-INTRON [Suspect]
     Indication: CHRONIC HEPATITIS
     Dosage: SEE IMAGE
     Dates: start: 20040706
  3. TYLENOL [Concomitant]
  4. CIPROCLOXACIN [Concomitant]

REACTIONS (2)
  - NEUTROPHIL COUNT DECREASED [None]
  - PELVIC INFLAMMATORY DISEASE [None]
